FAERS Safety Report 10698077 (Version 1)
Quarter: 2015Q1

REPORT INFORMATION
  Report Type: Spontaneous
  Country: US (occurrence: None)
  Receive Date: 20150107
  Receipt Date: 20150107
  Transmission Date: 20150721
  Serious: Yes (Hospitalization)
  Sender: FDA-Public Use
  Company Number: None

PATIENT
  Age: 67 Year
  Sex: Male
  Weight: 120.6 kg

DRUGS (1)
  1. ISONIAZID. [Suspect]
     Active Substance: ISONIAZID
     Indication: ACCIDENTAL EXPOSURE TO PRODUCT
     Dosage: EVERY DAY, PO
     Route: 048
     Dates: start: 20140701, end: 20140910

REACTIONS (5)
  - Hepatic enzyme increased [None]
  - Jaundice [None]
  - Abdominal pain upper [None]
  - Accidental exposure to product [None]
  - Hepatotoxicity [None]

NARRATIVE: CASE EVENT DATE: 20140910
